FAERS Safety Report 8011738-1 (Version None)
Quarter: 2011Q4

REPORT INFORMATION
  Report Type: 
  Country: None (occurrence: None)
  Receive Date: 20111228
  Receipt Date: 20111213
  Transmission Date: 20120403
  Serious: Yes (Other)
  Sender: FDA-Public Use
  Company Number: FR-CELGENEUS-056-21880-11121794

PATIENT
  Sex: Male

DRUGS (9)
  1. ETOPOSIDE [Suspect]
     Route: 041
     Dates: start: 20040601, end: 20040701
  2. ALKERAN [Suspect]
     Route: 041
  3. DEXAMETHASONE [Concomitant]
     Dosage: 10 MILLIGRAM
     Route: 065
     Dates: start: 20090801, end: 20110101
  4. CYCLOPHOSPHAMIDE [Suspect]
     Route: 041
  5. DEXAMETHASONE [Concomitant]
     Dosage: 20 MILLIGRAM
     Route: 065
     Dates: start: 20090311
  6. REVLIMID [Suspect]
     Dosage: 10 MILLIGRAM
     Route: 048
     Dates: start: 20090801, end: 20110101
  7. ADRIAMYCIN PFS [Suspect]
     Route: 041
     Dates: start: 20040101, end: 20040101
  8. DEXAMETHASONE [Concomitant]
     Dosage: 2.8571 MILLIGRAM
     Route: 065
     Dates: start: 20090601, end: 20090706
  9. REVLIMID [Suspect]
     Dosage: 25 MILLIGRAM
     Route: 048
     Dates: start: 20090311

REACTIONS (1)
  - ACUTE MYELOID LEUKAEMIA [None]
